FAERS Safety Report 16028071 (Version 2)
Quarter: 2019Q2

REPORT INFORMATION
  Report Type: Spontaneous
  Country: US (occurrence: US)
  Receive Date: 20190304
  Receipt Date: 20190405
  Transmission Date: 20190711
  Serious: Yes (Other)
  Sender: FDA-Public Use
  Company Number: US-BEH-2019099783

PATIENT
  Sex: Male

DRUGS (1)
  1. IDELVION [Suspect]
     Active Substance: COAGULATION FACTOR IX RECOMBINANT HUMAN
     Indication: COAGULATION FACTOR DEFICIENCY
     Dosage: 7000 IU, EVERY 14 DAYS
     Route: 042
     Dates: start: 20181221

REACTIONS (1)
  - Haemarthrosis [Unknown]
